FAERS Safety Report 17671046 (Version 1)
Quarter: 2020Q2

REPORT INFORMATION
  Report Type: Spontaneous
  Country: DE (occurrence: DE)
  Receive Date: 20200415
  Receipt Date: 20200415
  Transmission Date: 20200713
  Serious: Yes (Hospitalization)
  Sender: FDA-Public Use
  Company Number: DE-TEVA-2020-DE-1222560

PATIENT
  Age: 77 Year
  Sex: Male

DRUGS (3)
  1. FUMADERM [Suspect]
     Active Substance: CALCIUM MONOETHYLFUMARATE\DIMETHYL FUMARATE\MAGNESIUM MONOETHYLFUMARATE\ZINC MONOETHYLFUMARATE
     Indication: PITYRIASIS RUBRA PILARIS
     Dosage: ONCE
     Route: 065
  2. METHOTREXATE. [Suspect]
     Active Substance: METHOTREXATE
     Indication: PITYRIASIS RUBRA PILARIS
     Route: 065
  3. FUMARIC-ACID-MONOETHYL-ESTER [Suspect]
     Active Substance: ETHYL FUMARATE
     Indication: PITYRIASIS RUBRA PILARIS
     Route: 065

REACTIONS (3)
  - Ear canal stenosis [Unknown]
  - Skin exfoliation [Unknown]
  - Ectropion [Unknown]
